FAERS Safety Report 17198757 (Version 2)
Quarter: 2020Q4

REPORT INFORMATION
  Report Type: Report from Study
  Country: CA (occurrence: CA)
  Receive Date: 20191225
  Receipt Date: 20201210
  Transmission Date: 20210113
  Serious: Yes (Other)
  Sender: FDA-Public Use
  Company Number: CA-AMGEN-CANCT2019214388

PATIENT
  Age: 55 Year
  Sex: Female

DRUGS (1)
  1. AIMOVIG [Suspect]
     Active Substance: ERENUMAB-AOOE
     Indication: MIGRAINE
     Dosage: UNK
     Route: 065
     Dates: start: 20191205, end: 20201202

REACTIONS (4)
  - Malaise [Not Recovered/Not Resolved]
  - Skin warm [Unknown]
  - Hypotension [Unknown]
  - Fatigue [Not Recovered/Not Resolved]
